FAERS Safety Report 5284419-5 (Version None)
Quarter: 2007Q1

REPORT INFORMATION
  Report Type: 
  Country: None (occurrence: None)
  Receive Date: 20070327
  Receipt Date: 20070321
  Transmission Date: 20070707
  Serious: Yes (Death)
  Sender: FDA-Public Use
  Company Number: JPKYO-S-20070009FU

PATIENT
  Age: 69 Year
  Sex: Female

DRUGS (23)
  1. NAVELBINE [Suspect]
     Indication: BREAST CANCER
     Dosage: 35 MG IV
     Route: 042
     Dates: start: 20061101, end: 20061220
  2. HERCEPTIN [Concomitant]
  3. KYTRIL [Concomitant]
  4. DECADRON [Concomitant]
  5. GASTER [Concomitant]
  6. MAXIPIME [Concomitant]
  7. NEUTROGIN [Concomitant]
  8. GASTER [Concomitant]
  9. ZITHROMAC [Concomitant]
  10. IRINATOLON [Concomitant]
  11. MUCOSTA [Concomitant]
  12. GASMOTIN [Concomitant]
  13. HERCEPTIN [Concomitant]
  14. KYTRIL [Concomitant]
  15. DECADRON [Concomitant]
  16. GASTER [Concomitant]
  17. MAXIPIME [Concomitant]
  18. NEUTROGIN [Concomitant]
  19. GASTER [Concomitant]
  20. ZITHROMAC [Concomitant]
  21. IRINATOLON [Concomitant]
  22. MUCOSTA [Concomitant]
  23. GASMOTIN [Concomitant]

REACTIONS (8)
  - ABDOMINAL SYMPTOM [None]
  - CONVULSION [None]
  - DEPRESSED LEVEL OF CONSCIOUSNESS [None]
  - INFECTION [None]
  - INTERSTITIAL LUNG DISEASE [None]
  - ORAL INTAKE REDUCED [None]
  - PNEUMONIA [None]
  - TREMOR [None]
